FAERS Safety Report 6148081-1 (Version None)
Quarter: 2009Q2

REPORT INFORMATION
  Report Type: 
  Country: None (occurrence: None)
  Receive Date: 20090408
  Receipt Date: 20090401
  Transmission Date: 20091009
  Serious: Yes (Other)
  Sender: FDA-Public Use
  Company Number: B0567975A

PATIENT
  Age: 44 Year
  Sex: Female

DRUGS (4)
  1. CLENIL MODULITE [Suspect]
     Indication: ASTHMA
     Dosage: 400MCG PER DAY
     Route: 055
     Dates: start: 20080716
  2. PHENYTOIN [Concomitant]
     Route: 065
  3. RAMIPRIL [Concomitant]
     Route: 065
  4. SALBUTAMOL [Concomitant]
     Indication: ASTHMA
     Route: 065

REACTIONS (1)
  - DYSGEUSIA [None]
